FAERS Safety Report 15784935 (Version 3)
Quarter: 2019Q1

REPORT INFORMATION
  Report Type: Spontaneous
  Country: JP (occurrence: JP)
  Receive Date: 20190103
  Receipt Date: 20190129
  Transmission Date: 20190417
  Serious: Yes (Death, Other)
  Sender: FDA-Public Use
  Company Number: JP-ASTRAZENECA-2018SF67160

PATIENT
  Age: 72 Year
  Sex: Male
  Weight: 62 kg

DRUGS (11)
  1. LASIX [Concomitant]
     Active Substance: FUROSEMIDE
     Indication: CARDIAC FAILURE CHRONIC
     Route: 048
  2. BICALUTAMIDE. [Concomitant]
     Active Substance: BICALUTAMIDE
     Indication: PROSTATE CANCER
     Route: 048
  3. ALDACTONE A [Concomitant]
     Active Substance: SPIRONOLACTONE
     Indication: CARDIAC FAILURE CHRONIC
     Route: 048
  4. PREDONINE [Suspect]
     Active Substance: PREDNISOLONE
     Dosage: 60.0MG UNKNOWN
     Route: 065
     Dates: start: 20181212, end: 20181216
  5. GASTER [Concomitant]
     Active Substance: FAMOTIDINE
     Route: 048
  6. ENDOXAN [Suspect]
     Active Substance: CYCLOPHOSPHAMIDE
     Dosage: 500.0MG UNKNOWN
     Route: 065
     Dates: start: 20181213, end: 20181213
  7. ARTIST [Concomitant]
     Active Substance: CARVEDILOL
     Indication: CARDIAC FAILURE CHRONIC
     Route: 048
  8. TAGRISSO [Suspect]
     Active Substance: OSIMERTINIB
     Indication: NON-SMALL CELL LUNG CANCER
     Route: 048
     Dates: start: 20181201, end: 20181208
  9. METHYLPREDNISOLONE. [Suspect]
     Active Substance: METHYLPREDNISOLONE
     Dosage: 1000.0MG UNKNOWN
     Route: 065
     Dates: start: 20181209, end: 20181211
  10. WARFARIN [Concomitant]
     Active Substance: WARFARIN
     Indication: ATRIAL FIBRILLATION
     Route: 048
  11. METHYCOBAL [Concomitant]
     Active Substance: METHYLCOBALAMIN
     Route: 048

REACTIONS (3)
  - Respiratory failure [Fatal]
  - Interstitial lung disease [Fatal]
  - Cytomegalovirus infection [Unknown]

NARRATIVE: CASE EVENT DATE: 20181208
